FAERS Safety Report 6684230-4 (Version None)
Quarter: 2010Q2

REPORT INFORMATION
  Report Type: 
  Country: None (occurrence: None)
  Receive Date: 20100416
  Receipt Date: 20100407
  Transmission Date: 20101027
  Serious: Yes (Hospitalization)
  Sender: FDA-Public Use
  Company Number: US-RB-006030-10

PATIENT
  Age: 28 Year
  Sex: Female

DRUGS (1)
  1. SUBOXONE [Suspect]
     Indication: DRUG USE FOR UNKNOWN INDICATION
     Dosage: CONSUMER STATES SHE REDUCED HER DOSE, EXACT DOING DETAILS UNKNOWN
     Route: 065

REACTIONS (3)
  - ANXIETY [None]
  - BACK PAIN [None]
  - KIDNEY INFECTION [None]
